FAERS Safety Report 19003078 (Version 1)
Quarter: 2021Q1

REPORT INFORMATION
  Report Type: Spontaneous
  Country: DE (occurrence: DE)
  Receive Date: 20210312
  Receipt Date: 20210312
  Transmission Date: 20210420
  Serious: Yes (Hospitalization)
  Sender: FDA-Public Use
  Company Number: DE-009507513-2103DEU002962

PATIENT
  Age: 68 Year
  Sex: Male
  Weight: 90 kg

DRUGS (10)
  1. DONEPEZIL. [Concomitant]
     Active Substance: DONEPEZIL
     Dosage: 10 MILLIGRAMS, 0?0?1?0
     Route: 048
  2. PANTOPRAZOLE [Concomitant]
     Active Substance: PANTOPRAZOLE
     Dosage: 20 MILLIGRAMS, 1?0?0?0
     Route: 048
  3. SITAGLIPTIN PHOSPHATE (+) METFORMIN HYDROCHLORIDE [Suspect]
     Active Substance: METFORMIN HYDROCHLORIDE\SITAGLIPTIN PHOSPHATE
     Dosage: 1000/50 MILLIGRAMS, 1?0?0?0
     Route: 048
  4. ASPIRIN. [Concomitant]
     Active Substance: ASPIRIN
     Dosage: 100 MILLIGRAMS, 1?0?0?0
     Route: 048
  5. RAMIPRIL. [Suspect]
     Active Substance: RAMIPRIL
     Dosage: 5 MILLIGRAMS. 1?0?1?0
     Route: 048
  6. SPIRONOLACTONE. [Suspect]
     Active Substance: SPIRONOLACTONE
     Dosage: 25 MILLIGRAMS, 1?0?0?0
     Route: 048
  7. ATORVASTATIN [Concomitant]
     Active Substance: ATORVASTATIN
     Dosage: 40 MILLIGRAMS, 0?0?1?0
     Route: 048
  8. ESCITALOPRAM [Concomitant]
     Active Substance: ESCITALOPRAM OXALATE
     Dosage: 20 MILLIGRAMS, 0?0?1?0
     Route: 048
  9. TORSEMIDE. [Suspect]
     Active Substance: TORSEMIDE
     Dosage: 5 MILLIGRAMS, 1?0?0?0
     Route: 048
  10. AMLODIPINE [Concomitant]
     Active Substance: AMLODIPINE BESYLATE
     Dosage: 10 MILLIGRAMS, 1?0?0?0
     Route: 048

REACTIONS (4)
  - Electrolyte imbalance [Unknown]
  - Diarrhoea [Unknown]
  - General physical health deterioration [Unknown]
  - Nausea [Unknown]
